FAERS Safety Report 5777058-0 (Version None)
Quarter: 2008Q2

REPORT INFORMATION
  Report Type: 
  Country: None (occurrence: None)
  Receive Date: 20080618
  Receipt Date: 20080613
  Transmission Date: 20081010
  Serious: Yes (Other)
  Sender: FDA-Public Use
  Company Number: CH-ASTRAZENECA-2008PK01119

PATIENT
  Age: 16931 Day
  Sex: Male
  Weight: 92 kg

DRUGS (2)
  1. CRESTOR [Suspect]
     Route: 048
     Dates: start: 20080301, end: 20080430
  2. ATACAND [Concomitant]

REACTIONS (6)
  - ERECTILE DYSFUNCTION [None]
  - FATIGUE [None]
  - HOT FLUSH [None]
  - MYALGIA [None]
  - PYREXIA [None]
  - SUFFOCATION FEELING [None]
